FAERS Safety Report 11128416 (Version 1)
Quarter: 2015Q2

REPORT INFORMATION
  Report Type: Spontaneous
  Country: US (occurrence: US)
  Receive Date: 20150521
  Receipt Date: 20150521
  Transmission Date: 20150821
  Serious: Yes (Other)
  Sender: FDA-Public Use
  Company Number: US-ACTELION-A-CH2015-114027

PATIENT
  Age: 54 Year
  Sex: Male

DRUGS (13)
  1. LIPITOR [Concomitant]
     Active Substance: ATORVASTATIN CALCIUM
     Dosage: 20 MG, QD
  2. DIFLUCAN [Concomitant]
     Active Substance: FLUCONAZOLE
     Dosage: 100 MG, UNK
     Dates: start: 2014
  3. CLARITIN [Concomitant]
     Active Substance: LORATADINE
  4. ZAVESCA [Suspect]
     Active Substance: MIGLUSTAT
     Indication: GAUCHER^S DISEASE
     Dosage: 100 MG, TID
     Route: 048
     Dates: start: 2001, end: 201309
  5. FLONASE [Concomitant]
     Active Substance: FLUTICASONE PROPIONATE
     Dosage: 50 MCG, BID
  6. ZAVESCA [Suspect]
     Active Substance: MIGLUSTAT
     Dosage: 100 MG, QD
     Route: 048
     Dates: start: 201404, end: 201503
  7. PROZAC [Concomitant]
     Active Substance: FLUOXETINE HYDROCHLORIDE
     Dosage: 1200 MG, UNK
  8. CALCIUM [Concomitant]
     Active Substance: CALCIUM
     Dosage: 500 MG, BID
  9. ZAVESCA [Suspect]
     Active Substance: MIGLUSTAT
     Dosage: 100 MG, BID
     Route: 048
     Dates: start: 201309, end: 201404
  10. GAMUNEX-C [Concomitant]
     Active Substance: HUMAN IMMUNOGLOBULIN G
     Dosage: 10 %, Q1MONTH
     Dates: start: 201009
  11. VALTREX [Concomitant]
     Active Substance: VALACYCLOVIR HYDROCHLORIDE
     Dosage: 1 G, UNK
     Dates: start: 20130313
  12. LOVAZA [Concomitant]
     Active Substance: OMEGA-3-ACID ETHYL ESTERS
     Dosage: 2 G, BID
  13. ASPIRIN. [Concomitant]
     Active Substance: ASPIRIN
     Dosage: 81 MG, UNK

REACTIONS (7)
  - Carpal tunnel syndrome [Unknown]
  - Nerve compression [Unknown]
  - Nerve conduction studies abnormal [Unknown]
  - Action tremor [Unknown]
  - Dysgraphia [Unknown]
  - Fine motor delay [Unknown]
  - Spinal osteoarthritis [Not Recovered/Not Resolved]

NARRATIVE: CASE EVENT DATE: 2010
